FAERS Safety Report 5802069-6 (Version None)
Quarter: 2008Q3

REPORT INFORMATION
  Report Type: 
  Country: None (occurrence: None)
  Receive Date: 20080707
  Receipt Date: 20080625
  Transmission Date: 20090109
  Serious: Yes (Hospitalization)
  Sender: FDA-Public Use
  Company Number: PHHY2008FR12421

PATIENT
  Sex: Female

DRUGS (2)
  1. EXFORGE [Suspect]
     Dosage: 160/5 MG
     Dates: start: 20080211
  2. FLUDEX [Suspect]

REACTIONS (5)
  - BIOPSY SKIN ABNORMAL [None]
  - IDIOSYNCRATIC DRUG REACTION [None]
  - PHLEBITIS [None]
  - PRURITUS [None]
  - VARICOSE VEIN OPERATION [None]
